FAERS Safety Report 6304742-2 (Version None)
Quarter: 2009Q3

REPORT INFORMATION
  Report Type: 
  Country: None (occurrence: None)
  Receive Date: 20090811
  Receipt Date: 20090804
  Transmission Date: 20100115
  Serious: Yes (Death)
  Sender: FDA-Public Use
  Company Number: A0801391A

PATIENT
  Sex: Male
  Weight: 40 kg

DRUGS (3)
  1. SERETIDE [Suspect]
     Route: 055
     Dates: start: 20070601
  2. BAMIFIX [Concomitant]
     Dates: start: 20080201
  3. DIGOXIN [Concomitant]
     Dates: start: 20081201

REACTIONS (2)
  - EMPHYSEMA [None]
  - FEMUR FRACTURE [None]
